FAERS Safety Report 12895074 (Version 1)
Quarter: 2016Q4

REPORT INFORMATION
  Report Type: Report from Study
  Country: US (occurrence: US)
  Receive Date: 20161029
  Receipt Date: 20161029
  Transmission Date: 20170207
  Serious: No
  Sender: FDA-Public Use
  Company Number: US-AMGEN-USASL2016138209

PATIENT
  Age: 58 Year
  Sex: Female

DRUGS (3)
  1. PENICILLIN [Suspect]
     Active Substance: PENICILLIN
     Indication: PRODUCT USED FOR UNKNOWN INDICATION
     Dosage: UNK
     Route: 065
  2. LYRICA [Suspect]
     Active Substance: PREGABALIN
     Indication: PRODUCT USED FOR UNKNOWN INDICATION
     Dosage: UNK
     Route: 065
  3. ENBREL [Suspect]
     Active Substance: ETANERCEPT
     Indication: ANKYLOSING SPONDYLITIS
     Dosage: UNK
     Route: 065
     Dates: start: 2016

REACTIONS (15)
  - Respiratory disorder [Unknown]
  - Pyrexia [Recovering/Resolving]
  - Paranasal sinus hypersecretion [Unknown]
  - Oropharyngeal pain [Unknown]
  - Drug hypersensitivity [Unknown]
  - Abnormal dreams [Unknown]
  - Hallucination [Unknown]
  - Injection site reaction [Recovering/Resolving]
  - Cough [Unknown]
  - Drug intolerance [Unknown]
  - Hypersensitivity [Recovering/Resolving]
  - Condition aggravated [Unknown]
  - Headache [Not Recovered/Not Resolved]
  - Drug effect delayed [Recovering/Resolving]
  - Nasopharyngitis [Unknown]

NARRATIVE: CASE EVENT DATE: 2016
